APPROVED DRUG PRODUCT: TRIAZOLAM
Active Ingredient: TRIAZOLAM
Strength: 0.125MG
Dosage Form/Route: TABLET;ORAL
Application: A074224 | Product #001
Applicant: HIKMA PHARMACEUTICALS USA INC
Approved: Jun 1, 1994 | RLD: No | RS: No | Type: DISCN